FAERS Safety Report 18106558 (Version 3)
Quarter: 2020Q3

REPORT INFORMATION
  Report Type: Report from Study
  Country: AU (occurrence: AU)
  Receive Date: 20200804
  Receipt Date: 20200828
  Transmission Date: 20201103
  Serious: Yes (Hospitalization, Other)
  Sender: FDA-Public Use
  Company Number: AU-GLAXOSMITHKLINE-AU2020APC147440

PATIENT

DRUGS (1)
  1. MEPOLIZUMAB [Suspect]
     Active Substance: MEPOLIZUMAB
     Indication: ASTHMA
     Dosage: 100 MG, Z (EVERY 4 WEEK)
     Route: 058
     Dates: start: 20200723, end: 20200723

REACTIONS (19)
  - Condition aggravated [Unknown]
  - Lethargy [Unknown]
  - Headache [Unknown]
  - Chest discomfort [Unknown]
  - Wheezing [Unknown]
  - Somnolence [Unknown]
  - Tachycardia [Unknown]
  - Asthma [Unknown]
  - Cough [Unknown]
  - Fatigue [Unknown]
  - Arthralgia [Unknown]
  - Myalgia [Unknown]
  - Musculoskeletal chest pain [Unknown]
  - Dyspnoea [Unknown]
  - Painful respiration [Unknown]
  - Pulmonary embolism [Recovering/Resolving]
  - Haemoptysis [Unknown]
  - Secretion discharge [Unknown]
  - Mucosal discolouration [Unknown]

NARRATIVE: CASE EVENT DATE: 20200730
